FAERS Safety Report 8335135-4 (Version None)
Quarter: 2012Q2

REPORT INFORMATION
  Report Type: 
  Country: None (occurrence: None)
  Receive Date: 20120503
  Receipt Date: 20120424
  Transmission Date: 20120825
  Serious: Yes (Other)
  Sender: FDA-Public Use
  Company Number: GB-JNJFOC-20120412842

PATIENT

DRUGS (11)
  1. DOXORUBICIN HCL [Suspect]
     Indication: DIFFUSE LARGE B-CELL LYMPHOMA
     Dosage: CYCLE 1
     Route: 042
  2. VINCRISTINE SULFATE [Suspect]
     Indication: DIFFUSE LARGE B-CELL LYMPHOMA
     Dosage: CYCLE 1
     Route: 040
  3. CYCLOPHOSPHAMIDE [Suspect]
     Indication: DIFFUSE LARGE B-CELL LYMPHOMA
     Dosage: CYCLE 1
     Route: 040
  4. RITUXIMAB [Suspect]
     Indication: BURKITT'S LYMPHOMA
     Dosage: CYCLE 1
     Route: 040
  5. VINCRISTINE SULFATE [Suspect]
     Indication: BURKITT'S LYMPHOMA
     Dosage: CYCLE 1
     Route: 040
  6. RITUXIMAB [Suspect]
     Indication: DIFFUSE LARGE B-CELL LYMPHOMA
     Dosage: CYCLE 1
     Route: 040
  7. DOXORUBICIN HCL [Suspect]
     Indication: BURKITT'S LYMPHOMA
     Dosage: CYCLE 1
     Route: 042
  8. PREDNISOLONE ACETATE [Suspect]
     Indication: BURKITT'S LYMPHOMA
     Dosage: CYCLE 1
     Route: 040
  9. STEROIDS NOS [Concomitant]
     Indication: PREMEDICATION
     Route: 040
  10. CYCLOPHOSPHAMIDE [Suspect]
     Indication: BURKITT'S LYMPHOMA
     Dosage: CYCLE 1
     Route: 040
  11. PREDNISOLONE ACETATE [Suspect]
     Indication: DIFFUSE LARGE B-CELL LYMPHOMA
     Dosage: CYCLE 1
     Route: 040

REACTIONS (2)
  - MYOCARDIAL INFARCTION [None]
  - NEUTROPENIA [None]
